FAERS Safety Report 8798138 (Version 1)
Quarter: 2012Q4

REPORT INFORMATION
  Report Type: 
  Country: JP (occurrence: JP)
  Receive Date: 20120920
  Receipt Date: 20120920
  Transmission Date: 20130627
  Serious: Yes (Death, Other)
  Sender: FDA-Public Use
  Company Number: JP-009507513-1209JPN007516

PATIENT
  Age: 43 Year
  Sex: Female

DRUGS (3)
  1. DECADRON [Suspect]
     Dosage: UNK
     Route: 048
  2. GABEXATE MESYLATE [Concomitant]
  3. FOSFOMYCIN [Concomitant]

REACTIONS (4)
  - Renal failure [Unknown]
  - Nervous system disorder [Unknown]
  - Drug ineffective [Unknown]
  - Death [Fatal]
